FAERS Safety Report 5295469-7 (Version None)
Quarter: 2007Q2

REPORT INFORMATION
  Report Type: 
  Country: None (occurrence: None)
  Receive Date: 20070412
  Receipt Date: 20070404
  Transmission Date: 20071010
  Serious: Yes (Other)
  Sender: FDA-Public Use
  Company Number: JP-PFIZER INC-2007027909

PATIENT
  Age: 75 Year
  Sex: Male

DRUGS (3)
  1. NORVASC [Suspect]
     Dosage: DAILY DOSE:5MG-FREQ:DAILY
     Route: 048
  2. URSO [Suspect]
     Route: 048
  3. MAGNESIUM OXIDE [Concomitant]
     Route: 048

REACTIONS (1)
  - FACIAL PALSY [None]
